FAERS Safety Report 15571126 (Version 2)
Quarter: 2018Q4

REPORT INFORMATION
  Report Type: Report from Study
  Country: CA (occurrence: CA)
  Receive Date: 20181031
  Receipt Date: 20181206
  Transmission Date: 20190205
  Serious: Yes (Hospitalization)
  Sender: FDA-Public Use
  Company Number: PHHO2018CA011677

PATIENT
  Age: 9 Year
  Sex: Female
  Weight: 41.8 kg

DRUGS (4)
  1. MESNA. [Concomitant]
     Active Substance: MESNA
     Indication: PRODUCT USED FOR UNKNOWN INDICATION
     Dosage: 110 MG, Q24H OVER 15 MINS
     Route: 042
     Dates: start: 20180413
  2. CYCLOPHOSPHAMIDE. [Concomitant]
     Active Substance: CYCLOPHOSPHAMIDE
     Indication: CHEMOTHERAPY
     Dosage: 550 MG, Q24H OVER 1 HOUR
     Route: 042
     Dates: start: 20180413
  3. CTL019 [Suspect]
     Active Substance: TISAGENLECLEUCEL
     Indication: ACUTE LYMPHOCYTIC LEUKAEMIA
     Dosage: 13 ML, BOLUS
     Route: 042
     Dates: start: 20180419
  4. FLUDARABINE [Concomitant]
     Active Substance: FLUDARABINE PHOSPHATE
     Indication: CHEMOTHERAPY
     Dosage: 33 MG, Q24H OVER 30 MINS
     Route: 042
     Dates: start: 20180413

REACTIONS (2)
  - Periorbital cellulitis [Recovered/Resolved]
  - Pyrexia [Recovered/Resolved]

NARRATIVE: CASE EVENT DATE: 20181022
